FAERS Safety Report 5489935-9 (Version None)
Quarter: 2007Q4

REPORT INFORMATION
  Report Type: 
  Country: None (occurrence: None)
  Receive Date: 20071018
  Receipt Date: 20071009
  Transmission Date: 20080405
  Serious: Yes (Death)
  Sender: FDA-Public Use
  Company Number: LB-SANOFI-SYNTHELABO-A01200711457

PATIENT
  Age: 75 Year
  Sex: Female
  Weight: 56 kg

DRUGS (5)
  1. CONCOR [Concomitant]
     Indication: HYPERTENSION
     Route: 048
  2. TRITACE [Concomitant]
     Indication: HYPERTENSION
     Route: 048
  3. ZOCOR [Concomitant]
     Indication: DYSLIPIDAEMIA
     Route: 048
  4. ASPIRIN [Concomitant]
     Indication: ACUTE CORONARY SYNDROME
     Route: 048
     Dates: start: 20070801
  5. PLAVIX [Suspect]
     Indication: ACUTE CORONARY SYNDROME
     Route: 048
     Dates: start: 20070802, end: 20070813

REACTIONS (1)
  - DEATH [None]
